FAERS Safety Report 13849992 (Version 2)
Quarter: 2020Q2

REPORT INFORMATION
  Report Type: Spontaneous
  Country: US (occurrence: US)
  Receive Date: 20170809
  Receipt Date: 20200521
  Transmission Date: 20200713
  Serious: Yes (Death, Hospitalization, Other)
  Sender: FDA-Public Use
  Company Number: US-009507513-1708USA003997

PATIENT
  Sex: Male
  Weight: 80.73 kg

DRUGS (1)
  1. JANUMET [Suspect]
     Active Substance: METFORMIN HYDROCHLORIDE\SITAGLIPTIN PHOSPHATE
     Indication: PRODUCT USED FOR UNKNOWN INDICATION
     Dosage: 50/1000 MG, BID
     Route: 048
     Dates: start: 20100409, end: 201309

REACTIONS (11)
  - Pancreatitis acute [Unknown]
  - Vomiting [Unknown]
  - Adverse event [Unknown]
  - Atrial flutter [Unknown]
  - Renal cyst [Unknown]
  - Prostatomegaly [Unknown]
  - Nausea [Unknown]
  - Soft tissue mass [Unknown]
  - Bone lesion [Unknown]
  - Pancreatic carcinoma [Fatal]
  - Bile duct obstruction [Unknown]

NARRATIVE: CASE EVENT DATE: 2013
